FAERS Safety Report 19351263 (Version 2)
Quarter: 2021Q3

REPORT INFORMATION
  Report Type: Spontaneous
  Country: US (occurrence: US)
  Receive Date: 20210531
  Receipt Date: 20210906
  Transmission Date: 20211014
  Serious: Yes (Other)
  Sender: FDA-Public Use
  Company Number: US-TEVA-2021-US-1917219

PATIENT
  Age: 63 Year
  Sex: Male

DRUGS (3)
  1. VALSARTAN /HYDROCHLOROTHIAZIDE?AUROBINDO [Suspect]
     Active Substance: HYDROCHLOROTHIAZIDE\VALSARTAN
     Indication: HYPERTENSION
     Dosage: 320/ 25 MG
     Route: 048
     Dates: start: 20150408, end: 20191125
  2. VALSARTAN /HYDROCHLOROTHIAZIDE?MYLAN [Suspect]
     Active Substance: HYDROCHLOROTHIAZIDE\VALSARTAN
     Indication: HYPERTENSION
     Dosage: 160/ 12.5 MG
     Route: 048
     Dates: start: 20200527, end: 20210311
  3. VALSARTAN /HYDROCHLOROTHIAZIDE?AUROBINDO [Suspect]
     Active Substance: HYDROCHLOROTHIAZIDE\VALSARTAN
     Dosage: 160/ 12.5 MG
     Route: 048
     Dates: start: 20191202, end: 20200301

REACTIONS (1)
  - Hepatic cancer [Unknown]
